FAERS Safety Report 4839355-2 (Version None)
Quarter: 2005Q4

REPORT INFORMATION
  Report Type: 
  Country: None (occurrence: None)
  Receive Date: 20051129
  Receipt Date: 20050131
  Transmission Date: 20060501
  Serious: No
  Sender: FDA-Public Use
  Company Number: US-GLAXOSMITHKLINE-A0543102A

PATIENT
  Sex: Female

DRUGS (6)
  1. WELLBUTRIN SR [Suspect]
     Indication: DEPRESSION
     Dosage: 150MG TWICE PER DAY
     Route: 048
  2. WELLBUTRIN XL [Suspect]
     Indication: DEPRESSION
     Dosage: 300MG PER DAY
     Route: 048
  3. VALIUM [Concomitant]
  4. NORCO [Concomitant]
  5. MELATONIN [Concomitant]
  6. AMBIEN [Concomitant]

REACTIONS (3)
  - INSOMNIA [None]
  - SCIATICA [None]
  - THERAPEUTIC RESPONSE UNEXPECTED [None]
